FAERS Safety Report 8300925-0 (Version None)
Quarter: 2012Q2

REPORT INFORMATION
  Report Type: 
  Country: None (occurrence: None)
  Receive Date: 20120420
  Receipt Date: 20120412
  Transmission Date: 20120825
  Serious: Yes (Hospitalization)
  Sender: FDA-Public Use
  Company Number: CZ-BRISTOL-MYERS SQUIBB COMPANY-16517641

PATIENT
  Age: 71 Year
  Sex: Female

DRUGS (7)
  1. MELOXICAM [Suspect]
  2. BLINDED: SAXAGLIPTIN [Suspect]
     Indication: TYPE 2 DIABETES MELLITUS
     Dates: start: 20100701
  3. WARFARIN SODIUM [Suspect]
  4. METFORMIN HCL [Suspect]
     Indication: TYPE 2 DIABETES MELLITUS
     Dates: start: 20120104
  5. APIDRA [Suspect]
     Indication: TYPE 2 DIABETES MELLITUS
  6. BLINDED: PLACEBO [Suspect]
     Indication: TYPE 2 DIABETES MELLITUS
     Dates: start: 20100701
  7. LEVEMIR [Suspect]
     Indication: TYPE 2 DIABETES MELLITUS
     Dates: end: 20120402

REACTIONS (1)
  - MALLORY-WEISS SYNDROME [None]
